FAERS Safety Report 4968756-7 (Version None)
Quarter: 2006Q2

REPORT INFORMATION
  Report Type: 
  Country: None (occurrence: None)
  Receive Date: 20060411
  Receipt Date: 20060330
  Transmission Date: 20061013
  Serious: Yes (Hospitalization)
  Sender: FDA-Public Use
  Company Number: FR-BRISTOL-MYERS SQUIBB COMPANY-13333075

PATIENT
  Age: 63 Year
  Sex: Female

DRUGS (13)
  1. VASTEN TABS 40 MG [Suspect]
     Route: 048
  2. PREVISCAN [Interacting]
     Route: 048
     Dates: end: 20060222
  3. KARDEGIC [Interacting]
     Route: 048
     Dates: end: 20060222
  4. AMIODARONE [Interacting]
     Route: 048
     Dates: start: 20050603
  5. FUROSEMIDE [Concomitant]
     Route: 048
  6. APROVEL [Concomitant]
     Route: 048
  7. MEDIATENSYL [Concomitant]
  8. GLUCOPHAGE [Concomitant]
  9. KEPPRA [Concomitant]
  10. NEURONTIN [Concomitant]
  11. GLUCOR [Concomitant]
  12. BISOPROLOL [Concomitant]
  13. LANTUS [Concomitant]

REACTIONS (3)
  - ABDOMINAL HAEMATOMA [None]
  - DRUG INTERACTION [None]
  - INTERNATIONAL NORMALISED RATIO INCREASED [None]
